FAERS Safety Report 5331984-5 (Version None)
Quarter: 2007Q2

REPORT INFORMATION
  Report Type: 
  Country: None (occurrence: None)
  Receive Date: 20070306
  Receipt Date: 20060510
  Transmission Date: 20071010
  Serious: Yes (Other)
  Sender: FDA-Public Use
  Company Number: A03200602951

PATIENT

DRUGS (3)
  1. PLAVIX [Suspect]
     Indication: STENT PLACEMENT
     Dosage: ORAL
     Route: 048
     Dates: end: 20060505
  2. ASPIRIN [Suspect]
     Dosage: ORAL
     Route: 048
     Dates: end: 20060505
  3. NAPROXEN [Suspect]
     Dosage: ORAL
     Dates: end: 20060505

REACTIONS (1)
  - ULCER HAEMORRHAGE [None]
